FAERS Safety Report 4272496-X (Version None)
Quarter: 2004Q1

REPORT INFORMATION
  Report Type: 
  Country: None (occurrence: None)
  Receive Date: 20040115
  Receipt Date: 20031222
  Transmission Date: 20041129
  Serious: Yes (Death)
  Sender: FDA-Public Use
  Company Number: WAES 0401MYS00001

PATIENT
  Age: 41 Year
  Sex: Male
  Weight: 51 kg

DRUGS (4)
  1. [THERAPY UNSPECIFIED] [Concomitant]
  2. CANCIDAS [Suspect]
     Route: 041
     Dates: start: 20031219, end: 20031219
  3. CANCIDAS [Suspect]
     Route: 041
     Dates: start: 20031220, end: 20031220
  4. PANTOPRAZOLE [Concomitant]

REACTIONS (1)
  - DEATH [None]
